FAERS Safety Report 8826944 (Version 2)
Quarter: 2012Q4

REPORT INFORMATION
  Report Type: 
  Country: US (occurrence: US)
  Receive Date: 20121005
  Receipt Date: 20121121
  Transmission Date: 20130627
  Serious: No
  Sender: FDA-Public Use
  Company Number: US-PFIZER INC-2012246284

PATIENT
  Age: 68 Year
  Sex: Male
  Weight: 81.63 kg

DRUGS (3)
  1. LIPITOR [Suspect]
     Indication: TRIGLYCERIDES HIGH
     Dosage: 20 mg, daily
     Dates: start: 1995, end: 2012
  2. LIPITOR [Suspect]
     Indication: HIGH CHOLESTEROL
  3. GABAMAX [Concomitant]
     Dosage: UNK

REACTIONS (2)
  - Psoriasis [Not Recovered/Not Resolved]
  - Skin disorder [Not Recovered/Not Resolved]
